FAERS Safety Report 16991202 (Version 1)
Quarter: 2019Q4

REPORT INFORMATION
  Report Type: Spontaneous
  Country: US (occurrence: US)
  Receive Date: 20190920
  Receipt Date: 20190920
  Transmission Date: 20200122
  Serious: Yes (Other)
  Sender: FDA-Public Use
  Company Number: None

PATIENT
  Age: 40 Year
  Sex: Female
  Weight: 81.65 kg

DRUGS (1)
  1. CLINDAMYCIN 300MG [Suspect]
     Active Substance: CLINDAMYCIN PHOSPHATE
     Indication: SKIN INFECTION

REACTIONS (3)
  - Self-induced vomiting [None]
  - Gastrooesophageal reflux disease [None]
  - Dyspepsia [None]

NARRATIVE: CASE EVENT DATE: 20190908
